FAERS Safety Report 19938515 (Version 1)
Quarter: 2021Q4

REPORT INFORMATION
  Report Type: Report from Study
  Country: GB (occurrence: GB)
  Receive Date: 20211011
  Receipt Date: 20211011
  Transmission Date: 20220303
  Serious: Yes (Death)
  Sender: FDA-Public Use
  Company Number: GB-BAXTER-2021BAX031422

PATIENT
  Sex: Female

DRUGS (1)
  1. POTASSIUM CHLORIDE\SODIUM CHLORIDE [Suspect]
     Active Substance: POTASSIUM CHLORIDE\SODIUM CHLORIDE
     Indication: Product used for unknown indication
     Dosage: INFUSION DURATION: 12 HOURS
     Route: 042

REACTIONS (1)
  - Death [Fatal]
